FAERS Safety Report 9014011 (Version 1)
Quarter: 2013Q1

REPORT INFORMATION
  Report Type: Spontaneous
  Country: US (occurrence: None)
  Receive Date: 20130109
  Receipt Date: 20130109
  Transmission Date: 20140127
  Serious: No
  Sender: FDA-Public Use
  Company Number: None

PATIENT
  Sex: Female
  Weight: 89.1 kg

DRUGS (1)
  1. IMPLANON [Suspect]
     Indication: CONTRACEPTION
     Dosage: 1 EVERY 3 YEARS IMPLANT SUBCUTANEOUSLY
     Route: 058

REACTIONS (3)
  - Pain in extremity [None]
  - Device extrusion [None]
  - Device breakage [None]
